FAERS Safety Report 16246384 (Version 1)
Quarter: 2019Q2

REPORT INFORMATION
  Report Type: Report from Study
  Country: None (occurrence: US)
  Receive Date: 20190426
  Receipt Date: 20190426
  Transmission Date: 20190711
  Serious: Yes (Other)
  Sender: FDA-Public Use
  Company Number: US-ABBVIE-19S-163-2755019-00

PATIENT
  Age: 51 Year
  Sex: Male

DRUGS (1)
  1. CREON [Suspect]
     Active Substance: PANCRELIPASE AMYLASE\PANCRELIPASE LIPASE\PANCRELIPASE PROTEASE
     Indication: PRODUCT USED FOR UNKNOWN INDICATION
     Route: 048

REACTIONS (6)
  - Post procedural complication [Unknown]
  - Large intestine polyp [Unknown]
  - Thrombosis [Unknown]
  - Pancreaticoduodenectomy [Unknown]
  - Type 2 diabetes mellitus [Unknown]
  - Hepatectomy [Unknown]

NARRATIVE: CASE EVENT DATE: 200410
